FAERS Safety Report 13737203 (Version 1)
Quarter: 2017Q3

REPORT INFORMATION
  Report Type: Spontaneous
  Country: US (occurrence: US)
  Receive Date: 20170710
  Receipt Date: 20170710
  Transmission Date: 20171127
  Serious: No
  Sender: FDA-Public Use
  Company Number: US-SAOL THERAPEUTICS-2016SAO00113

PATIENT
  Age: 61 Year
  Sex: Male

DRUGS (4)
  1. BACLOFEN. [Suspect]
     Active Substance: BACLOFEN
     Indication: PARAPLEGIA
     Dosage: 664.11 ?G, 1X/DAY
  2. MORPHINE [Suspect]
     Active Substance: MORPHINE
     Dosage: 3.495 MG, 1X/DAY
  3. BACLOFEN. [Suspect]
     Active Substance: BACLOFEN
     Indication: PAIN
     Dosage: 700.26 ?G, \DAY
     Route: 037
  4. MORPHINE [Suspect]
     Active Substance: MORPHINE
     Dosage: 3.686 MG, \DAY
     Route: 037

REACTIONS (8)
  - Pain [Unknown]
  - Vomiting [Unknown]
  - Asthenia [Unknown]
  - Chest pain [Unknown]
  - Burning sensation [Unknown]
  - Device alarm issue [Unknown]
  - Device computer issue [Unknown]
  - Dyspepsia [Unknown]

NARRATIVE: CASE EVENT DATE: 201606
